FAERS Safety Report 12946681 (Version 1)
Quarter: 2016Q4

REPORT INFORMATION
  Report Type: Report from Study
  Country: US (occurrence: US)
  Receive Date: 20161116
  Receipt Date: 20161116
  Transmission Date: 20170207
  Serious: Yes (Other)
  Sender: FDA-Public Use
  Company Number: US-AMGEN-USASL2016150245

PATIENT
  Age: 64 Year
  Sex: Male
  Weight: 107.3 kg

DRUGS (20)
  1. TOPROL XL [Concomitant]
     Active Substance: METOPROLOL SUCCINATE
     Dosage: 50 MG, QD
     Route: 048
     Dates: start: 20160920
  2. EPIPEN [Concomitant]
     Active Substance: EPINEPHRINE
     Dosage: 2- PA K 0. 3 M G/0. 3 M L (1 -. 1. 000), INTRARNUSCULAR INJECT AS DIRECTED
     Dates: start: 20160107
  3. DEXILANT [Concomitant]
     Active Substance: DEXLANSOPRAZOLE
     Dosage: 60 MG, QD (1 CAPSULE(S) BY MOUTH DAILY)
     Route: 048
     Dates: start: 20160107
  4. SINGULAIR [Concomitant]
     Active Substance: MONTELUKAST SODIUM
     Dosage: 10 MG, QD
     Route: 048
     Dates: start: 20151124
  5. ASPIRIN 81 [Concomitant]
     Active Substance: ASPIRIN
     Dosage: 81 MG, QD
     Route: 048
     Dates: start: 20151119
  6. REPATHA [Suspect]
     Active Substance: EVOLOCUMAB
     Indication: FAMILIAL RISK FACTOR
     Dosage: 140 MG/ML, Q2WK FOR 90 DAYS
     Route: 058
     Dates: start: 20151119
  7. EFFIENT [Concomitant]
     Active Substance: PRASUGREL HYDROCHLORIDE
     Dosage: 10 MG, QD
     Route: 048
     Dates: start: 20151119
  8. NITROGLYCERIN. [Concomitant]
     Active Substance: NITROGLYCERIN
     Dosage: 0.4 MG, UNK
     Route: 060
     Dates: start: 20151119
  9. AMIODARONE [Concomitant]
     Active Substance: AMIODARONE
     Dosage: 200 MG, QD
     Route: 048
     Dates: start: 20151119
  10. SYNTHROID [Concomitant]
     Active Substance: LEVOTHYROXINE SODIUM
     Dosage: 125 MUG, QD
     Route: 048
     Dates: start: 20160713
  11. SPIRIVA [Concomitant]
     Active Substance: TIOTROPIUM BROMIDE MONOHYDRATE
     Dosage: 10 MUG, QD (I CAPSULE(S) INHALE DAILY)
     Dates: start: 20160107
  12. PROAIR HFA [Concomitant]
     Active Substance: ALBUTEROL SULFATE
     Dosage: 90 MUG/ACTUATION AEROSOL INHALER, (2 PUFF(S) INHALE EVERY 4-6 HOURS AROUND THE CLOCK)
     Dates: start: 20151119
  13. DALIRESP [Concomitant]
     Active Substance: ROFLUMILAST
     Dosage: 500 MUG, QD
     Route: 048
     Dates: start: 20160107
  14. LORAZEPAM. [Concomitant]
     Active Substance: LORAZEPAM
     Dosage: 105 MG, ONE TABLET BY MONTH THREE TIMES A DAY AS NEEDED
     Dates: start: 20161027
  15. LASIX [Concomitant]
     Active Substance: FUROSEMIDE
     Dosage: 40 MG, QD
     Route: 048
     Dates: start: 20151119
  16. SYMBICORT [Concomitant]
     Active Substance: BUDESONIDE\FORMOTEROL FUMARATE DIHYDRATE
     Dosage: (ACTUATION 2 PUFF(S) INHALE TWICE A DAY )160 MCG-4.5 MCG/ACTUATION HFA AEROSOL INHALER
     Dates: start: 20160603
  17. RESTORA [Concomitant]
     Dosage: 120 MG-400 MG-4 BILLION CELL CAPSULE QD (1 CAPSULE(S) BY MOUTH DAILY)
     Route: 048
     Dates: start: 20160525
  18. ALBUTEROL. [Concomitant]
     Active Substance: ALBUTEROL
     Dosage: 2.5 MG/3ML, (0-083 %), SOLUTION FOR NEBULIZATION (1 INHALE FOUR TIRNES A DAY)
     Dates: start: 20160107
  19. PREVNAR [Concomitant]
     Active Substance: PNEUMOCOCCAL 7-VALENT CONJUGATE VACCINE (DIPHTHERIA CRM197 PROTEIN)
     Route: 030
  20. VALSARTAN. [Concomitant]
     Active Substance: VALSARTAN
     Dosage: 40 MG, BID
     Route: 048
     Dates: start: 20160113

REACTIONS (29)
  - Carotid artery occlusion [Not Recovered/Not Resolved]
  - Blood glucose abnormal [Not Recovered/Not Resolved]
  - Agitation [Unknown]
  - Benign prostatic hyperplasia [Not Recovered/Not Resolved]
  - Cardiac failure [Not Recovered/Not Resolved]
  - Acute myocardial infarction [Not Recovered/Not Resolved]
  - Hypersensitivity [Not Recovered/Not Resolved]
  - Generalised anxiety disorder [Not Recovered/Not Resolved]
  - Hypothyroidism [Not Recovered/Not Resolved]
  - Sleep disorder due to a general medical condition [Not Recovered/Not Resolved]
  - Off label use [Unknown]
  - Myocardial infarction [Unknown]
  - Arteriosclerosis coronary artery [Not Recovered/Not Resolved]
  - Drug ineffective [Unknown]
  - Ventricular tachycardia [Not Recovered/Not Resolved]
  - Restlessness [Unknown]
  - Nicotine dependence [Not Recovered/Not Resolved]
  - Respiratory tract infection [Not Recovered/Not Resolved]
  - Carotid artery stenosis [Not Recovered/Not Resolved]
  - Dyspepsia [Not Recovered/Not Resolved]
  - Chest pain [Not Recovered/Not Resolved]
  - Ischaemic cardiomyopathy [Not Recovered/Not Resolved]
  - Stress [Unknown]
  - Gastrooesophageal reflux disease [Not Recovered/Not Resolved]
  - Sleep apnoea syndrome [Not Recovered/Not Resolved]
  - Chronic obstructive pulmonary disease [Not Recovered/Not Resolved]
  - Essential hypertension [Not Recovered/Not Resolved]
  - Abdominal pain [Not Recovered/Not Resolved]
  - Hyperkalaemia [Not Recovered/Not Resolved]

NARRATIVE: CASE EVENT DATE: 20151119
